FAERS Safety Report 6508856-3 (Version None)
Quarter: 2009Q4

REPORT INFORMATION
  Report Type: 
  Country: None (occurrence: None)
  Receive Date: 20091221
  Receipt Date: 20090825
  Transmission Date: 20100525
  Serious: No
  Sender: FDA-Public Use
  Company Number: US-ASTRAZENECA-2009SE09888

PATIENT
  Age: 50 Year
  Sex: Female
  Weight: 74.4 kg

DRUGS (5)
  1. CRESTOR [Suspect]
     Indication: BLOOD CHOLESTEROL INCREASED
     Route: 048
     Dates: start: 20090501, end: 20090501
  2. CRESTOR [Suspect]
     Route: 048
     Dates: start: 20090724, end: 20090729
  3. AVAPRO [Concomitant]
  4. METFORMIN HCL [Concomitant]
  5. CAPZOLE [Concomitant]

REACTIONS (5)
  - ARTHRALGIA [None]
  - JOINT SWELLING [None]
  - LIGAMENT PAIN [None]
  - MYALGIA [None]
  - TENDON PAIN [None]
